FAERS Safety Report 17729911 (Version 1)
Quarter: 2020Q2

REPORT INFORMATION
  Report Type: Spontaneous
  Country: US (occurrence: US)
  Receive Date: 20200430
  Receipt Date: 20200430
  Transmission Date: 20200714
  Serious: No
  Sender: FDA-Public Use
  Company Number: US-TEVA-2020-US-1229509

PATIENT
  Sex: Female

DRUGS (1)
  1. CICLOSPORIN MODIFIED [Suspect]
     Active Substance: CYCLOSPORINE
     Indication: URTICARIA
     Route: 065

REACTIONS (6)
  - Hypertension [Unknown]
  - Off label use [Unknown]
  - Flushing [Unknown]
  - Dizziness [Unknown]
  - Muscle spasms [Unknown]
  - Adverse event [Unknown]
